FAERS Safety Report 25765117 (Version 1)
Quarter: 2025Q3

REPORT INFORMATION
  Report Type: Spontaneous
  Country: CA (occurrence: CA)
  Receive Date: 20250905
  Receipt Date: 20250905
  Transmission Date: 20251021
  Serious: Yes (Other)
  Sender: ORGANON
  Company Number: CA-ORGANON-O2509CAN000050

PATIENT
  Age: 8 Year
  Sex: Male
  Weight: 26 kg

DRUGS (3)
  1. SINGULAIR [Suspect]
     Active Substance: MONTELUKAST SODIUM
     Indication: Asthma
     Dosage: 5 MILLIGRAM, QD (1 EVERY 1 DAYS)
     Route: 048
  2. FLUTICASONE [Concomitant]
     Active Substance: FLUTICASONE
     Route: 065
  3. ALBUTEROL [Concomitant]
     Active Substance: ALBUTEROL
     Route: 065

REACTIONS (4)
  - Abnormal behaviour [Unknown]
  - Aggression [Unknown]
  - Agitation [Unknown]
  - Impulsive behaviour [Unknown]
